FAERS Safety Report 11223082 (Version 2)
Quarter: 2021Q1

REPORT INFORMATION
  Report Type: Spontaneous
  Country: US (occurrence: US)
  Receive Date: 20150626
  Receipt Date: 20210128
  Transmission Date: 20210419
  Serious: Yes (Other)
  Sender: FDA-Public Use
  Company Number: US-BAYER-2015-354754

PATIENT
  Age: 41 Year
  Sex: Female

DRUGS (6)
  1. ACETYLSALICYLIC ACID (} 100 MG) [Suspect]
     Active Substance: ASPIRIN
     Indication: ACUTE MYOCARDIAL INFARCTION
     Dosage: 325 MG, QD
  2. CLOPIDOGREL [Interacting]
     Active Substance: CLOPIDOGREL BISULFATE
     Dosage: 75 MG, QD
  3. METOPROLOL. [Concomitant]
     Active Substance: METOPROLOL
     Dosage: 12.5 MG, BID
  4. EVEROLIMUS. [Suspect]
     Active Substance: EVEROLIMUS
  5. SIMVASTATIN. [Concomitant]
     Active Substance: SIMVASTATIN
     Dosage: 85 MG, QD
  6. LISINOPRIL. [Suspect]
     Active Substance: LISINOPRIL
     Dosage: 2.5 MG, QD

REACTIONS (8)
  - Blood loss anaemia [None]
  - Maternal exposure during pregnancy [None]
  - Oligohydramnios [None]
  - Amenorrhoea [None]
  - Wound haematoma [None]
  - Labelled drug-drug interaction medication error [None]
  - Incision site haematoma [None]
  - Anaemia [None]
